FAERS Safety Report 14699321 (Version 1)
Quarter: 2018Q1

REPORT INFORMATION
  Report Type: Report from Study
  Country: BR (occurrence: BR)
  Receive Date: 20180330
  Receipt Date: 20180330
  Transmission Date: 20180509
  Serious: Yes (Other)
  Sender: FDA-Public Use
  Company Number: PHHY2018BR054567

PATIENT
  Sex: Female
  Weight: 68 kg

DRUGS (1)
  1. ACLASTA [Suspect]
     Active Substance: ZOLEDRONIC ACID
     Indication: PRODUCT USED FOR UNKNOWN INDICATION
     Dosage: 1 DF (5 MG BY 100 ML), Q12MO
     Route: 042

REACTIONS (5)
  - Ill-defined disorder [Not Recovered/Not Resolved]
  - Weight fluctuation [Unknown]
  - Blood disorder [Not Recovered/Not Resolved]
  - Bone marrow disorder [Not Recovered/Not Resolved]
  - Malaise [Unknown]
